FAERS Safety Report 10387446 (Version 2)
Quarter: 2014Q3

REPORT INFORMATION
  Report Type: Spontaneous
  Country: DE (occurrence: DE)
  Receive Date: 20140815
  Receipt Date: 20140902
  Transmission Date: 20150326
  Serious: Yes (Hospitalization, Other)
  Sender: FDA-Public Use
  Company Number: DE-PFIZER INC-2014225773

PATIENT
  Age: 77 Year
  Sex: Male

DRUGS (6)
  1. CORDAREX [Suspect]
     Active Substance: AMIODARONE
     Indication: ATRIAL FIBRILLATION
     Dosage: 200 MG, DAILY
     Route: 048
     Dates: start: 2011, end: 20140808
  2. MARCUMAR [Concomitant]
     Active Substance: PHENPROCOUMON
  3. TOREM [Concomitant]
     Active Substance: TORSEMIDE
  4. VALSARTAN. [Concomitant]
     Active Substance: VALSARTAN
  5. SPIRIVA [Concomitant]
     Active Substance: TIOTROPIUM BROMIDE MONOHYDRATE
  6. CARVEDILOL. [Concomitant]
     Active Substance: CARVEDILOL

REACTIONS (2)
  - Escherichia urinary tract infection [Recovered/Resolved]
  - Bronchiolitis [Recovered/Resolved]

NARRATIVE: CASE EVENT DATE: 20140802
